FAERS Safety Report 15358374 (Version 1)
Quarter: 2018Q3

REPORT INFORMATION
  Report Type: Spontaneous
  Country: US (occurrence: US)
  Receive Date: 20180906
  Receipt Date: 20180906
  Transmission Date: 20181010
  Serious: No
  Sender: FDA-Public Use
  Company Number: US-PERRIGO-18US000926

PATIENT
  Age: 61 Year
  Sex: Female
  Weight: 47.62 kg

DRUGS (2)
  1. EVAMIST [Suspect]
     Active Substance: ESTRADIOL
     Indication: MENOPAUSAL SYMPTOMS
     Dosage: 3.06 MG, QD
     Route: 062
     Dates: start: 2010, end: 20180111
  2. EVAMIST [Suspect]
     Active Substance: ESTRADIOL
     Dosage: UNK, DAILY
     Route: 062
     Dates: start: 20180112, end: 20180123

REACTIONS (2)
  - Underdose [Recovered/Resolved]
  - Wrong technique in product usage process [Recovered/Resolved]

NARRATIVE: CASE EVENT DATE: 20180112
